FAERS Safety Report 11854162 (Version 3)
Quarter: 2016Q1

REPORT INFORMATION
  Report Type: Spontaneous
  Country: US (occurrence: US)
  Receive Date: 20151220
  Receipt Date: 20160323
  Transmission Date: 20160526
  Serious: No
  Sender: FDA-Public Use
  Company Number: US-009507513-1511USA013442

PATIENT
  Age: 46 Year
  Sex: Female

DRUGS (2)
  1. NEXPLANON [Suspect]
     Active Substance: ETONOGESTREL
     Dosage: UNK
     Route: 059
     Dates: start: 20151109
  2. NEXPLANON [Suspect]
     Active Substance: ETONOGESTREL
     Indication: CONTRACEPTION
     Dosage: UNK
     Route: 059
     Dates: start: 2013, end: 20160216

REACTIONS (8)
  - Overdose [Unknown]
  - Device dislocation [Unknown]
  - Device difficult to use [Recovered/Resolved]
  - Cervical dysplasia [Unknown]
  - Incorrect drug administration duration [Unknown]
  - Skin swelling [Unknown]
  - Implant site fibrosis [Unknown]
  - Mammogram abnormal [Unknown]

NARRATIVE: CASE EVENT DATE: 2015
